FAERS Safety Report 18495449 (Version 2)
Quarter: 2020Q4

REPORT INFORMATION
  Report Type: Spontaneous
  Country: US (occurrence: US)
  Receive Date: 20201112
  Receipt Date: 20201120
  Transmission Date: 20210114
  Serious: No
  Sender: FDA-Public Use
  Company Number: US-GLAXOSMITHKLINE-US2020AMR223865

PATIENT
  Sex: Female

DRUGS (1)
  1. LAMICTAL [Suspect]
     Active Substance: LAMOTRIGINE
     Indication: DEPRESSION
     Dosage: 200 MG
     Dates: start: 2015

REACTIONS (5)
  - Nausea [Unknown]
  - Intestinal polyp [Unknown]
  - Headache [Unknown]
  - Withdrawal syndrome [Unknown]
  - Intentional underdose [Unknown]
